FAERS Safety Report 10666889 (Version 1)
Quarter: 2014Q4

REPORT INFORMATION
  Report Type: Spontaneous
  Country: US (occurrence: US)
  Receive Date: 20141222
  Receipt Date: 20141222
  Transmission Date: 20150529
  Serious: No
  Sender: FDA-Public Use
  Company Number: US-DRREDDYS-USA/USA/14/0044393

PATIENT

DRUGS (1)
  1. ZIPRASIDONE CAPSULES 20 MG, 40 MG, 60 MG + 80 MG [Suspect]
     Active Substance: ZIPRASIDONE
     Indication: PRODUCT USED FOR UNKNOWN INDICATION
     Route: 065

REACTIONS (2)
  - Paranoia [Recovering/Resolving]
  - Depression [Recovering/Resolving]
